FAERS Safety Report 7681229-6 (Version None)
Quarter: 2011Q3

REPORT INFORMATION
  Report Type: 
  Country: None (occurrence: None)
  Receive Date: 20110810
  Receipt Date: 20110726
  Transmission Date: 20111222
  Serious: Yes (Hospitalization)
  Sender: FDA-Public Use
  Company Number: LORA20110001

PATIENT
  Age: 58 Year
  Sex: Female

DRUGS (4)
  1. DULOXETINE(DULOXETINE) (30 MILLIGRAM, CAPSULES) [Suspect]
     Indication: PRODUCT USED FOR UNKNOWN INDICATION
     Dosage: 840 MG, ONCE, ORAL
     Route: 048
  2. BUSPIRONE(BUSPIRONE) (10 MILLIGRAM, TABLETS) [Suspect]
     Indication: PRODUCT USED FOR UNKNOWN INDICATION
     Dosage: 300 MG, ONCE, ORAL
     Route: 048
  3. SULPIRIDE(SULPIRIDE) (100 MILLIGRAM, TABLETS) [Suspect]
     Indication: PRODUCT USED FOR UNKNOWN INDICATION
     Dosage: 3100 MG, ONCE, ORAL
     Route: 048
  4. LORAZEPAM [Suspect]
     Indication: PRODUCT USED FOR UNKNOWN INDICATION
     Dosage: 28 MG, ONCE, ORAL
     Route: 048

REACTIONS (12)
  - CHILLS [None]
  - BEZOAR [None]
  - GASTROINTESTINAL SOUNDS ABNORMAL [None]
  - HYPERREFLEXIA [None]
  - MULTIPLE DRUG OVERDOSE INTENTIONAL [None]
  - OESOPHAGEAL ULCER [None]
  - MYOCLONUS [None]
  - OESOPHAGEAL OBSTRUCTION [None]
  - COMA [None]
  - HYPERHIDROSIS [None]
  - DYSPHAGIA [None]
  - NYSTAGMUS [None]
